FAERS Safety Report 20132742 (Version 1)
Quarter: 2021Q4

REPORT INFORMATION
  Report Type: Spontaneous
  Country: US (occurrence: US)
  Receive Date: 20211130
  Receipt Date: 20211130
  Transmission Date: 20220303
  Serious: No
  Sender: FDA-Public Use
  Company Number: US-NOVARTISTESTPH-NVSC2021US272517

PATIENT
  Sex: Female

DRUGS (3)
  1. METOPROLOL [Suspect]
     Active Substance: METOPROLOL
     Indication: Product used for unknown indication
     Dosage: 25 MG, QD
     Route: 065
  2. VITAMIN 15 [Concomitant]
     Indication: Product used for unknown indication
     Route: 065
  3. CO Q 10 WITH L CARNITINE [Concomitant]
     Indication: Product used for unknown indication
     Route: 065

REACTIONS (1)
  - Palpitations [Unknown]
